FAERS Safety Report 4932618-1 (Version None)
Quarter: 2006Q1

REPORT INFORMATION
  Report Type: 
  Country: None (occurrence: None)
  Receive Date: 20060301
  Receipt Date: 20060215
  Transmission Date: 20060701
  Serious: Yes (Death, Life-Threatening)
  Sender: FDA-Public Use
  Company Number: 2006-0009240

PATIENT
  Sex: Male

DRUGS (6)
  1. EMTRIVA [Suspect]
     Indication: HIV INFECTION
     Dosage: 200 MG, 1 IN 1 D, ORAL
     Route: 048
     Dates: start: 20050908, end: 20051107
  2. VIREAD [Suspect]
     Indication: HIV INFECTION
     Dosage: ORAL
     Route: 048
     Dates: start: 20050908, end: 20051107
  3. NORVIR [Suspect]
     Indication: HIV INFECTION
     Dosage: 1 DOSAGE FORMS, 1 IN 1 D, ORAL
     Route: 048
     Dates: start: 20050908, end: 20051107
  4. REYATAZ [Suspect]
     Indication: HIV INFECTION
     Dosage: ORAL
     Route: 048
     Dates: start: 20050908, end: 20051107
  5. BACTRIM [Suspect]
     Indication: PROPHYLAXIS
     Dosage: 1 DOSAGE FORMS, ORAL
     Route: 048
     Dates: start: 20050908, end: 20051107
  6. PRAVASTATIN [Suspect]
     Indication: ESSENTIAL HYPERTENSION
     Dosage: 20 MG, 1 IN 1 D, ORAL
     Route: 048
     Dates: end: 20051107

REACTIONS (1)
  - HEPATIC FAILURE [None]
